FAERS Safety Report 10955368 (Version 2)
Quarter: 2015Q2

REPORT INFORMATION
  Report Type: Spontaneous
  Country: US (occurrence: None)
  Receive Date: 20150318
  Receipt Date: 20150625
  Transmission Date: 20150821
  Serious: Yes (Other)
  Sender: FDA-Public Use
  Company Number: US-KEDRION-2015014

PATIENT
  Age: 34 Year
  Sex: Female

DRUGS (4)
  1. RHOGAM [Suspect]
     Active Substance: HUMAN RHO(D) IMMUNE GLOBULIN
     Dates: start: 20141010
  2. ANTI-D IMMUNOGLOBULIN [Suspect]
     Active Substance: IMMUNE GLOBULIN, ANTI-HUMAN
     Indication: PREGNANCY
     Dates: start: 20150202
  3. PRENATAL VITAMINS [Concomitant]
     Active Substance: VITAMINS
  4. RHOGAM [Suspect]
     Active Substance: HUMAN RHO(D) IMMUNE GLOBULIN
     Indication: ABORTION SPONTANEOUS
     Dates: start: 20141010

REACTIONS (1)
  - Syphilis [None]

NARRATIVE: CASE EVENT DATE: 20150210
